FAERS Safety Report 23220421 (Version 3)
Quarter: 2023Q4

REPORT INFORMATION
  Report Type: Spontaneous
  Country: US (occurrence: US)
  Receive Date: 20231123
  Receipt Date: 20231204
  Transmission Date: 20240110
  Serious: Yes (Other)
  Sender: FDA-Public Use
  Company Number: US-GLAXOSMITHKLINE-US2023AMR158680

PATIENT

DRUGS (2)
  1. ZEJULA [Suspect]
     Active Substance: NIRAPARIB
     Indication: Product used for unknown indication
     Dosage: 200 MG, QD
  2. ZEJULA [Suspect]
     Active Substance: NIRAPARIB
     Dosage: 1 DF

REACTIONS (5)
  - Clostridium difficile infection [Unknown]
  - Dry mouth [Not Recovered/Not Resolved]
  - Constipation [Unknown]
  - Tinnitus [Not Recovered/Not Resolved]
  - Abdominal pain upper [Unknown]
